FAERS Safety Report 13861184 (Version 5)
Quarter: 2019Q1

REPORT INFORMATION
  Report Type: Report from Study
  Country: JP (occurrence: JP)
  Receive Date: 20170811
  Receipt Date: 20190109
  Transmission Date: 20190417
  Serious: Yes (Death, Hospitalization, Other)
  Sender: FDA-Public Use
  Company Number: JP-ASTRAZENECA-2017SE64037

PATIENT
  Age: 26744 Day
  Sex: Female
  Weight: 43 kg

DRUGS (15)
  1. TAGRISSO [Suspect]
     Active Substance: OSIMERTINIB
     Indication: NON-SMALL CELL LUNG CANCER
     Route: 048
     Dates: start: 20170522, end: 20170613
  2. TAGRISSO [Suspect]
     Active Substance: OSIMERTINIB
     Indication: NON-SMALL CELL LUNG CANCER
     Route: 048
     Dates: start: 20170614, end: 20170625
  3. LECICARBON [Concomitant]
     Active Substance: SODIUM BICARBONATE\SODIUM PHOSPHATE, MONOBASIC
     Route: 065
  4. MOSAPRAMINE HYDROCHLORIDE [Concomitant]
     Active Substance: MOSAPRAMINE
     Route: 048
  5. FERROUS CITRATE [Concomitant]
     Active Substance: FERROUS CITRATE
     Route: 048
  6. SENNOSIDE [Concomitant]
     Active Substance: SENNOSIDES
     Route: 048
  7. MAGNESIUM OXIDE. [Concomitant]
     Active Substance: MAGNESIUM OXIDE
     Indication: CONSTIPATION
     Route: 048
     Dates: start: 20140316
  8. ZOLEDRONIC ACID HYDRATE [Concomitant]
     Active Substance: ZOLEDRONIC ACID
     Dosage: DAILY
     Route: 042
  9. GLYCYRON [Concomitant]
     Indication: LIVER DISORDER
     Route: 048
     Dates: start: 20131104
  10. POLAPREZINC [Concomitant]
     Active Substance: POLAPREZINC
     Indication: CHRONIC GASTRITIS
     Route: 048
     Dates: start: 20150308
  11. OXYCONTIN [Concomitant]
     Active Substance: OXYCODONE HYDROCHLORIDE
     Indication: CANCER PAIN
     Route: 048
     Dates: start: 20170426
  12. OXINORM [Concomitant]
     Indication: CANCER PAIN
     Dosage: 2.5MG AS REQUIRED
     Route: 065
     Dates: start: 20170502
  13. URSODEOXYCHOLIC ACID [Concomitant]
     Active Substance: URSODIOL
     Indication: LIVER DISORDER
     Route: 048
     Dates: start: 20131104
  14. METHYCOBAL [Concomitant]
     Active Substance: METHYLCOBALAMIN
     Route: 048
  15. MOSAPRIDE CITRATE [Concomitant]
     Active Substance: MOSAPRIDE CITRATE
     Indication: CHRONIC GASTRITIS
     Route: 048
     Dates: start: 20150301

REACTIONS (5)
  - Nausea [Recovered/Resolved]
  - Vomiting [Recovered/Resolved]
  - Decreased appetite [Recovered/Resolved]
  - Long QT syndrome [Recovered/Resolved]
  - Interstitial lung disease [Recovered/Resolved]

NARRATIVE: CASE EVENT DATE: 20170614
